FAERS Safety Report 9815490 (Version 1)
Quarter: 2014Q1

REPORT INFORMATION
  Report Type: Spontaneous
  Country: US (occurrence: US)
  Receive Date: 20140114
  Receipt Date: 20140114
  Transmission Date: 20141002
  Serious: No
  Sender: FDA-Public Use
  Company Number: US-PFIZER INC-2014010179

PATIENT
  Age: 41 Year
  Sex: Female
  Weight: 68.03 kg

DRUGS (1)
  1. PRISTIQ [Suspect]
     Indication: NERVOUS SYSTEM DISORDER
     Dosage: 150 MG, DAILY
     Route: 048
     Dates: start: 2013, end: 2013

REACTIONS (2)
  - Adnexa uteri pain [Not Recovered/Not Resolved]
  - Off label use [Unknown]
